FAERS Safety Report 18622394 (Version 1)
Quarter: 2020Q4

REPORT INFORMATION
  Report Type: Spontaneous
  Country: MX (occurrence: MX)
  Receive Date: 20201216
  Receipt Date: 20201216
  Transmission Date: 20210114
  Serious: Yes (Other)
  Sender: FDA-Public Use
  Company Number: MX-PFIZER INC-2020494207

PATIENT
  Sex: Male

DRUGS (1)
  1. AZULFIDINA [Suspect]
     Active Substance: SULFASALAZINE
     Indication: ANKYLOSING SPONDYLITIS
     Dosage: UNK

REACTIONS (2)
  - Uveitis [Unknown]
  - Off label use [Unknown]
